FAERS Safety Report 7472618-3 (Version None)
Quarter: 2011Q2

REPORT INFORMATION
  Report Type: 
  Country: None (occurrence: None)
  Receive Date: 20110511
  Receipt Date: 20110502
  Transmission Date: 20111010
  Serious: Yes (Hospitalization)
  Sender: FDA-Public Use
  Company Number: US-ASTRAZENECA-2011SE26282

PATIENT
  Age: 57 Year
  Sex: Female

DRUGS (1)
  1. NEXIUM [Suspect]
     Route: 048

REACTIONS (6)
  - PAIN [None]
  - NECK EXPLORATION [None]
  - GASTROINTESTINAL PAIN [None]
  - DRUG DOSE OMISSION [None]
  - SPINAL OPERATION [None]
  - ABDOMINAL PAIN UPPER [None]
